FAERS Safety Report 10924751 (Version 2)
Quarter: 2015Q2

REPORT INFORMATION
  Report Type: Spontaneous
  Country: US (occurrence: US)
  Receive Date: 20150318
  Receipt Date: 20150524
  Transmission Date: 20150821
  Serious: No
  Sender: FDA-Public Use
  Company Number: US-JNJFOC-20130513523

PATIENT
  Sex: Male
  Weight: 86.18 kg

DRUGS (1)
  1. KETOCONAZOLE 2% [Suspect]
     Active Substance: KETOCONAZOLE
     Indication: INFESTATION
     Route: 065
     Dates: start: 2012

REACTIONS (3)
  - Wrong technique in drug usage process [Unknown]
  - Product use issue [Not Recovered/Not Resolved]
  - Product container seal issue [Unknown]

NARRATIVE: CASE EVENT DATE: 2012
